FAERS Safety Report 17414161 (Version 1)
Quarter: 2020Q1

REPORT INFORMATION
  Report Type: Report from Study
  Country: CA (occurrence: CA)
  Receive Date: 20200213
  Receipt Date: 20200213
  Transmission Date: 20200409
  Serious: Yes (Other)
  Sender: FDA-Public Use
  Company Number: CA-JNJFOC-20200141293

PATIENT
  Age: 52 Year
  Sex: Female
  Weight: 82.7 kg

DRUGS (1)
  1. REMICADE [Suspect]
     Active Substance: INFLIXIMAB
     Indication: ANKYLOSING SPONDYLITIS
     Route: 042
     Dates: start: 20191213

REACTIONS (5)
  - Respiratory tract congestion [Unknown]
  - Dry mouth [Unknown]
  - Ankylosing spondylitis [Not Recovered/Not Resolved]
  - Taste disorder [Unknown]
  - Oral candidiasis [Not Recovered/Not Resolved]

NARRATIVE: CASE EVENT DATE: 20200112
